FAERS Safety Report 5263691-1 (Version None)
Quarter: 2007Q1

REPORT INFORMATION
  Report Type: 
  Country: None (occurrence: None)
  Receive Date: 20070313
  Receipt Date: 20070305
  Transmission Date: 20070707
  Serious: Yes (Other)
  Sender: FDA-Public Use
  Company Number: GB-GLAXOSMITHKLINE-B0461563A

PATIENT
  Sex: Female
  Weight: 68.8 kg

DRUGS (11)
  1. ORLISTAT [Suspect]
     Route: 048
     Dates: start: 20060601, end: 20070211
  2. GLUCOPHAGE [Suspect]
     Route: 048
     Dates: start: 20060509
  3. AMITRIPTYLINE HCL [Concomitant]
     Route: 048
  4. ASPIRIN [Concomitant]
     Route: 048
  5. BENDROFLUAZIDE [Concomitant]
     Route: 048
  6. DICLOFENAC SODIUM [Concomitant]
     Route: 048
  7. LANSOPRAZOLE [Concomitant]
     Route: 048
  8. LEVEMIR [Concomitant]
     Route: 058
  9. MS CONTIN [Concomitant]
     Route: 048
  10. PERINDOPRIL ERBUMINE [Concomitant]
     Route: 048
  11. ZOPLICONE [Concomitant]
     Route: 048

REACTIONS (2)
  - CONSTIPATION [None]
  - DRUG INTERACTION [None]
